FAERS Safety Report 14430767 (Version 3)
Quarter: 2018Q1

REPORT INFORMATION
  Report Type: Spontaneous
  Country: FR (occurrence: FR)
  Receive Date: 20180124
  Receipt Date: 20180212
  Transmission Date: 20180509
  Serious: Yes (Other)
  Sender: FDA-Public Use
  Company Number: FR-MERCK KGAA-2040675

PATIENT
  Age: 53 Year
  Sex: Male
  Weight: 120 kg

DRUGS (14)
  1. CEFIXIME. [Concomitant]
     Active Substance: CEFIXIME
     Dates: start: 20170818
  2. PROCORALAN [Concomitant]
     Active Substance: IVABRADINE
     Dates: start: 20170818
  3. CARDENSIEL [Concomitant]
     Active Substance: BISOPROLOL FUMARATE
     Dates: start: 20170818
  4. EUCREAS [Concomitant]
     Active Substance: METFORMIN HYDROCHLORIDE\VILDAGLIPTIN
  5. NOVOTHYROX [Suspect]
     Active Substance: LEVOTHYROXINE SODIUM
     Indication: HYPOTHYROIDISM
  6. LEVOTHYROX 125 NF [Suspect]
     Active Substance: LEVOTHYROXINE SODIUM
  7. LASILIX [Concomitant]
     Active Substance: FUROSEMIDE
     Dates: start: 20170818
  8. METFORMIN [Concomitant]
     Active Substance: METFORMIN HYDROCHLORIDE
  9. SMECTA [Concomitant]
     Active Substance: MONTMORILLONITE
     Dates: start: 20170818
  10. PREVISCAN (FLUINDIONE) [Concomitant]
     Active Substance: FLUINDIONE
     Dates: start: 20170818
  11. INSPRA [Concomitant]
     Active Substance: EPLERENONE
     Dates: start: 20170818
  12. SPASFON [Concomitant]
     Active Substance: PHLOROGLUCINOL\1,3,5-TRIMETHOXYBENZENE
     Dates: start: 20170818
  13. TAHOR [Concomitant]
     Active Substance: ATORVASTATIN CALCIUM
     Dates: start: 20170818
  14. COVERSYL [Concomitant]
     Active Substance: PERINDOPRIL
     Dates: start: 20170818

REACTIONS (21)
  - Tachycardia [None]
  - Hypersomnia [None]
  - Blood pressure decreased [None]
  - Weight decreased [None]
  - Diarrhoea [None]
  - Social avoidant behaviour [None]
  - Lymphadenopathy [None]
  - Fatigue [None]
  - Asthenia [None]
  - Decreased appetite [None]
  - Mood swings [None]
  - Malaise [None]
  - Insomnia [None]
  - Gamma-glutamyltransferase increased [None]
  - Hot flush [None]
  - Tremor [None]
  - Apathy [None]
  - Joint swelling [None]
  - Hepatomegaly [None]
  - Gastric disorder [None]
  - Eczema [None]

NARRATIVE: CASE EVENT DATE: 2017
